FAERS Safety Report 11095850 (Version 2)
Quarter: 2018Q1

REPORT INFORMATION
  Report Type: Report from Study
  Country: US (occurrence: US)
  Receive Date: 20150507
  Receipt Date: 20180122
  Transmission Date: 20180508
  Serious: Yes (Hospitalization, Other)
  Sender: FDA-Public Use
  Company Number: US-ROCHE-1129372

PATIENT
  Sex: Male
  Weight: 57.5 kg

DRUGS (19)
  1. NUTROPIN AQ [Suspect]
     Active Substance: SOMATROPIN
     Indication: AZOTAEMIA
     Route: 058
  2. CYCLOSPORINE. [Concomitant]
     Active Substance: CYCLOSPORINE
     Route: 065
  3. CLARITIN (BRAZIL) [Concomitant]
     Route: 065
  4. NUTROPIN AQ [Suspect]
     Active Substance: SOMATROPIN
     Indication: CHRONIC KIDNEY DISEASE
     Route: 058
  5. NUTROPIN AQ [Suspect]
     Active Substance: SOMATROPIN
     Indication: NEPHROTIC SYNDROME
     Route: 058
  6. RITUXAN [Suspect]
     Active Substance: RITUXIMAB
     Indication: PRODUCT USED FOR UNKNOWN INDICATION
     Route: 065
     Dates: start: 200504
  7. PREDNISONE. [Concomitant]
     Active Substance: PREDNISONE
     Route: 048
  8. PREDNISONE. [Concomitant]
     Active Substance: PREDNISONE
     Route: 048
  9. SODIUM BICARBONATE. [Concomitant]
     Active Substance: SODIUM BICARBONATE
     Route: 065
  10. VITAMIN D3 [Concomitant]
     Active Substance: CHOLECALCIFEROL
     Route: 048
  11. ANDRODERM [Concomitant]
     Active Substance: TESTOSTERONE
  12. LASIX [Concomitant]
     Active Substance: FUROSEMIDE
     Route: 042
     Dates: start: 20070717
  13. SIMVASTATIN. [Concomitant]
     Active Substance: SIMVASTATIN
     Route: 065
  14. PREDNISONE. [Concomitant]
     Active Substance: PREDNISONE
     Route: 065
  15. RENVELA [Concomitant]
     Active Substance: SEVELAMER CARBONATE
     Route: 065
  16. ALBUMIN [Concomitant]
     Active Substance: ALBUMIN HUMAN
     Route: 065
     Dates: start: 20070717
  17. PROGRAFT [Concomitant]
     Active Substance: TACROLIMUS
  18. LISINOPRIL. [Concomitant]
     Active Substance: LISINOPRIL
     Route: 048
  19. ASPIRIN. [Concomitant]
     Active Substance: ASPIRIN
     Route: 065

REACTIONS (18)
  - Blood thyroid stimulating hormone decreased [Unknown]
  - Fistula [Unknown]
  - Headache [Unknown]
  - Diabetes mellitus [Unknown]
  - Sinus pain [Unknown]
  - Periorbital oedema [Unknown]
  - Rhinitis [Unknown]
  - Nasal mucosal disorder [Unknown]
  - Drug hypersensitivity [Unknown]
  - Pallor [Unknown]
  - Skin striae [Unknown]
  - Anuria [Unknown]
  - Heart rate increased [Unknown]
  - Nephrotic syndrome [Unknown]
  - Swelling [Unknown]
  - Drug intolerance [Unknown]
  - Proteinuria [Unknown]
  - Anaemia [Unknown]
